FAERS Safety Report 25336782 (Version 1)
Quarter: 2025Q2

REPORT INFORMATION
  Report Type: Spontaneous
  Country: HK (occurrence: HK)
  Receive Date: 20250520
  Receipt Date: 20250520
  Transmission Date: 20250717
  Serious: Yes (Other)
  Sender: AMGEN
  Company Number: HK-AMGEN-HKGSP2025095202

PATIENT
  Age: 39 Year
  Sex: Female

DRUGS (10)
  1. XGEVA [Suspect]
     Active Substance: DENOSUMAB
     Indication: Breast cancer stage IV
     Route: 065
  2. FLUOROURACIL [Concomitant]
     Active Substance: FLUOROURACIL
     Route: 065
  3. EPIRUBICIN [Concomitant]
     Active Substance: EPIRUBICIN
     Route: 065
  4. CYCLOPHOSPHAMIDE [Concomitant]
     Active Substance: CYCLOPHOSPHAMIDE
     Dosage: ONCE EVERY 3 WEEKS
     Route: 065
     Dates: start: 20230216
  5. RIBOCICLIB [Concomitant]
     Active Substance: RIBOCICLIB
     Route: 065
     Dates: start: 202305, end: 202406
  6. ENANTONE LP [Concomitant]
     Active Substance: LEUPROLIDE ACETATE
     Route: 065
  7. LETROZOLE [Concomitant]
     Active Substance: LETROZOLE
     Route: 065
  8. TRASTUZUMAB DERUXTECAN [Concomitant]
     Active Substance: TRASTUZUMAB DERUXTECAN
     Dosage: 300 MILLIGRAM, Q3WK
     Route: 040
     Dates: start: 202407, end: 202410
  9. ABRAXANE [Concomitant]
     Active Substance: PACLITAXEL
     Route: 065
     Dates: start: 202503
  10. CARBOPLATIN [Concomitant]
     Active Substance: CARBOPLATIN
     Route: 065
     Dates: start: 202503

REACTIONS (3)
  - Breast cancer metastatic [Unknown]
  - Pleural effusion [Recovering/Resolving]
  - Off label use [Unknown]
